FAERS Safety Report 23684600 (Version 1)
Quarter: 2024Q1

REPORT INFORMATION
  Report Type: Report from Study
  Country: US (occurrence: US)
  Receive Date: 20240328
  Receipt Date: 20240328
  Transmission Date: 20240410
  Serious: Yes (Other)
  Sender: FDA-Public Use
  Company Number: US-ALXN-202403USA001456US

PATIENT
  Sex: Male

DRUGS (1)
  1. STRENSIQ [Suspect]
     Active Substance: ASFOTASE ALFA
     Indication: Product used for unknown indication
     Dosage: UNK
     Route: 065

REACTIONS (9)
  - Lipodystrophy acquired [Unknown]
  - Calcium ionised decreased [Unknown]
  - Arthralgia [Unknown]
  - Vitamin D decreased [Unknown]
  - Fibrous cortical defect [Unknown]
  - Gait disturbance [Unknown]
  - Ligament sprain [Unknown]
  - Injection site bruising [Unknown]
  - Injection site atrophy [Unknown]

NARRATIVE: CASE EVENT DATE: 20221122
